FAERS Safety Report 17128097 (Version 1)
Quarter: 2019Q4

REPORT INFORMATION
  Report Type: Spontaneous
  Country: US (occurrence: US)
  Receive Date: 20191209
  Receipt Date: 20191209
  Transmission Date: 20200122
  Serious: No
  Sender: FDA-Public Use
  Company Number: US-UCBSA-2017002821

PATIENT
  Age: 10 Year
  Sex: Male

DRUGS (2)
  1. VIMPAT [Suspect]
     Active Substance: LACOSAMIDE
     Dosage: 12 ML IN THE AM
     Dates: start: 20170120
  2. VIMPAT [Suspect]
     Active Substance: LACOSAMIDE
     Indication: PARTIAL SEIZURES
     Dosage: 6 ML, 2X/DAY (BID)

REACTIONS (2)
  - Intentional product misuse [Unknown]
  - Accidental overdose [Unknown]

NARRATIVE: CASE EVENT DATE: 20170120
